FAERS Safety Report 8529726-5 (Version None)
Quarter: 2012Q3

REPORT INFORMATION
  Report Type: 
  Country: None (occurrence: None)
  Receive Date: 20120723
  Receipt Date: 20120705
  Transmission Date: 20120928
  Serious: No
  Sender: FDA-Public Use
  Company Number: US-JNJFOC-20120704379

PATIENT
  Sex: Male
  Weight: 90.72 kg

DRUGS (5)
  1. DIVALPROEX SODIUM [Concomitant]
     Indication: AFFECTIVE DISORDER
     Route: 048
  2. NASONEX [Concomitant]
     Indication: MULTIPLE ALLERGIES
     Route: 045
     Dates: start: 20110101
  3. INVEGA SUSTENNA [Suspect]
     Indication: BIPOLAR DISORDER
     Route: 030
     Dates: start: 20120702
  4. SINGULAIR [Concomitant]
     Indication: MULTIPLE ALLERGIES
     Route: 048
     Dates: start: 20110101
  5. TEMAZEPAM [Concomitant]
     Indication: AFFECTIVE DISORDER
     Route: 048
     Dates: start: 20120501

REACTIONS (3)
  - SOMNOLENCE [None]
  - SLUGGISHNESS [None]
  - FATIGUE [None]
